FAERS Safety Report 8276433-2 (Version None)
Quarter: 2012Q2

REPORT INFORMATION
  Report Type: 
  Country: None (occurrence: None)
  Receive Date: 20120412
  Receipt Date: 20120412
  Transmission Date: 20120825
  Serious: No
  Sender: FDA-Public Use
  Company Number: US-PFIZER INC-2012053703

PATIENT
  Sex: Male
  Weight: 95.2 kg

DRUGS (23)
  1. CELEBREX [Suspect]
     Indication: ARTHRALGIA
     Dosage: 200 MG, 2X/DAY
     Route: 048
  2. PLAVIX [Concomitant]
     Indication: ANTIPLATELET THERAPY
     Dosage: 75 MG, DAILY
  3. ZETIA [Concomitant]
     Indication: BLOOD CHOLESTEROL ABNORMAL
     Dosage: 10 MG, DAILY
  4. OXYCODONE HCL AND ACETAMINOPHEN [Concomitant]
     Indication: BACK PAIN
  5. CARISOPRODOL [Concomitant]
     Indication: PAIN
  6. OSTEO BI-FLEX [Concomitant]
     Indication: ARTHRALGIA
     Dosage: UNK, 2X/DAY
     Dates: start: 19930101
  7. LODINE [Suspect]
     Indication: BACK PAIN
  8. METOPROLOL TARTRATE [Concomitant]
     Indication: HYPERTENSION
     Dosage: 25 MG, 2X/DAY
  9. LIPITOR [Concomitant]
     Indication: BLOOD CHOLESTEROL ABNORMAL
     Dosage: 40 MG, DAILY
     Dates: end: 20120101
  10. CELEBREX [Suspect]
     Indication: BACK PAIN
     Dosage: 200 MG, DAILY
     Route: 048
  11. CARISOPRODOL [Concomitant]
     Indication: BACK PAIN
  12. RAMIPRIL [Concomitant]
     Indication: HYPERTENSION
     Dosage: 10 MG, DAILY
  13. LODINE [Suspect]
     Indication: ARTHRALGIA
     Dosage: 400 MG, 2X/DAY
     Dates: end: 20120221
  14. CARISOPRODOL [Concomitant]
     Indication: ARTHRALGIA
     Dosage: UNK, 3X/DAY
     Dates: start: 19930101
  15. LOVAZA [Concomitant]
     Indication: CARDIAC DISORDER
     Dosage: 1000 MG, 2X/DAY
  16. ACETYLSALICYLIC ACID [Concomitant]
     Indication: CARDIAC DISORDER
     Dosage: 162 MG, DAILY
  17. SAW PALMETTO [Concomitant]
     Indication: PROSTATIC DISORDER
     Dosage: 2 CAPSULES, 2X/DAY
     Route: 048
  18. CELEBREX [Suspect]
     Indication: PAIN
  19. OXYCODONE HCL AND ACETAMINOPHEN [Concomitant]
     Indication: PAIN
  20. OSTEO BI-FLEX [Concomitant]
     Indication: PAIN
  21. LODINE [Suspect]
     Indication: PAIN
  22. OXYCODONE HCL AND ACETAMINOPHEN [Concomitant]
     Indication: ARTHRALGIA
     Dosage: UNK, 3X/DAY
     Dates: start: 19930101
  23. OSTEO BI-FLEX [Concomitant]
     Indication: BACK PAIN

REACTIONS (1)
  - PAIN [None]
